FAERS Safety Report 7772684-1 (Version None)
Quarter: 2011Q3

REPORT INFORMATION
  Report Type: 
  Country: None (occurrence: None)
  Receive Date: 20110922
  Receipt Date: 20090721
  Transmission Date: 20111222
  Serious: Yes (Hospitalization, Other)
  Sender: FDA-Public Use
  Company Number: US-ASTRAZENECA-2007UW19323

PATIENT
  Age: 38 Year
  Sex: Female
  Weight: 104.8 kg

DRUGS (45)
  1. ESTRADIOL [Concomitant]
  2. LEVAQUIN [Concomitant]
  3. TRILEPTAL [Concomitant]
  4. CLONAZEPAM [Concomitant]
  5. METHOCARBAMOL [Concomitant]
  6. AMOXICILLIN [Concomitant]
  7. IMITREX [Concomitant]
     Dates: start: 20010618
  8. IBUPROFEN [Concomitant]
  9. LITHIUM [Concomitant]
  10. SEROQUEL [Suspect]
     Dosage: 50-200 MG
     Route: 048
     Dates: start: 20051005, end: 20060911
  11. CLARITIN [Concomitant]
  12. DEPAKOTE [Concomitant]
  13. ZITHROMAX [Concomitant]
  14. CYCLOPHOSPHAMIDE [Concomitant]
  15. RANITIDINE [Concomitant]
  16. OXYCODONE HCL [Concomitant]
  17. TRIAMTERENE [Concomitant]
  18. EFFEXOR [Concomitant]
  19. ZYPREXA [Concomitant]
  20. HYDROXYZINE [Concomitant]
  21. CIMETIDINE [Concomitant]
  22. SEROQUEL [Suspect]
     Dosage: 50-200 MG
     Route: 048
     Dates: start: 20051005, end: 20060911
  23. MIGRAZONE [Concomitant]
  24. CEPHALEXIN [Concomitant]
  25. REMERON [Concomitant]
  26. AMBIEN [Concomitant]
  27. ABILIFY [Concomitant]
     Dates: start: 20070101
  28. ANTABUSE [Concomitant]
  29. SEROQUEL [Suspect]
     Indication: SLEEP DISORDER
     Dosage: 25 MG, 600 MG
     Route: 048
     Dates: start: 20020719, end: 20060101
  30. HYDROC/APAP [Concomitant]
  31. PAXIL [Concomitant]
  32. SYNTHROID [Concomitant]
     Route: 048
  33. LAMICTAL [Concomitant]
     Dosage: 150-450 MG BID
     Route: 048
  34. NAPROXEN [Concomitant]
  35. SEROQUEL [Suspect]
     Indication: MENTAL DISORDER
     Dosage: 25 MG, 600 MG
     Route: 048
     Dates: start: 20020719, end: 20060101
  36. DOXYCYCLINE [Concomitant]
  37. FLUOCINONIDE [Concomitant]
  38. LORAZEPAM [Concomitant]
  39. WELLBUTRIN [Concomitant]
  40. PROVENTIL GENTLEHALER [Concomitant]
  41. MOBAN [Concomitant]
  42. ERY-TAB [Concomitant]
  43. PERCOCET [Concomitant]
     Dosage: 5/325 MG
     Dates: start: 20010913
  44. RISPERDAL [Concomitant]
     Indication: HALLUCINATION
     Dates: start: 20080101
  45. GEODON [Concomitant]
     Dates: start: 20060101

REACTIONS (6)
  - SUICIDE ATTEMPT [None]
  - TYPE 2 DIABETES MELLITUS [None]
  - BLOOD CHOLESTEROL INCREASED [None]
  - TARDIVE DYSKINESIA [None]
  - HYPERLIPIDAEMIA [None]
  - OBESITY [None]
